FAERS Safety Report 23212966 (Version 1)
Quarter: 2023Q4

REPORT INFORMATION
  Report Type: Spontaneous
  Country: FR (occurrence: FR)
  Receive Date: 20231121
  Receipt Date: 20231121
  Transmission Date: 20240110
  Serious: Yes (Hospitalization, Other)
  Sender: FDA-Public Use
  Company Number: None

PATIENT
  Age: 20 Year
  Sex: Female
  Weight: 70 kg

DRUGS (2)
  1. FLUOXETINE [Suspect]
     Active Substance: FLUOXETINE HYDROCHLORIDE
     Indication: Product used for unknown indication
     Dosage: 400 MILLIGRAM, 1 TOTAL
     Route: 065
     Dates: start: 20231003
  2. CHLORPROMAZINE [Suspect]
     Active Substance: CHLORPROMAZINE
     Indication: Product used for unknown indication
     Dosage: 20 DOSAGE FORM, 1 TOTAL
     Route: 065
     Dates: start: 20231003

REACTIONS (2)
  - Poisoning deliberate [Recovered/Resolved]
  - Somnolence [Recovered/Resolved]

NARRATIVE: CASE EVENT DATE: 20231003
